FAERS Safety Report 10194233 (Version 6)
Quarter: 2020Q4

REPORT INFORMATION
  Report Type: Report from Study
  Country: AR (occurrence: AR)
  Receive Date: 20140525
  Receipt Date: 20201106
  Transmission Date: 20210113
  Serious: Yes (Hospitalization)
  Sender: FDA-Public Use
  Company Number: PHHO2014AR007421

PATIENT
  Age: 14 Year
  Sex: Female
  Weight: 27.5 kg

DRUGS (4)
  1. CANAKINUMAB. [Suspect]
     Active Substance: CANAKINUMAB
     Indication: JUVENILE IDIOPATHIC ARTHRITIS
     Dosage: 4 MG/KG, QW4
     Route: 058
     Dates: start: 20121102, end: 20140415
  2. FOLIC ACID. [Concomitant]
     Active Substance: FOLIC ACID
     Indication: PRODUCT USED FOR UNKNOWN INDICATION
     Dosage: 5 MG, QW
     Route: 048
  3. METHOTREXATE. [Suspect]
     Active Substance: METHOTREXATE
     Indication: JUVENILE IDIOPATHIC ARTHRITIS
     Dosage: 15 MG, QW
     Route: 030
     Dates: start: 20060728, end: 20140516
  4. MEPREDNISONA [Suspect]
     Active Substance: MEPREDNISONE
     Indication: JUVENILE IDIOPATHIC ARTHRITIS
     Dosage: 8 MG, QD
     Route: 048
     Dates: start: 20030731, end: 20140516

REACTIONS (1)
  - Furuncle [Recovered/Resolved with Sequelae]

NARRATIVE: CASE EVENT DATE: 20140505
